FAERS Safety Report 23748869 (Version 1)
Quarter: 2024Q2

REPORT INFORMATION
  Report Type: Spontaneous
  Country: FR (occurrence: FR)
  Receive Date: 20240416
  Receipt Date: 20240416
  Transmission Date: 20240716
  Serious: Yes (Life-Threatening)
  Sender: FDA-Public Use
  Company Number: None

PATIENT
  Age: 65 Year
  Sex: Female

DRUGS (6)
  1. PROPOFOL [Suspect]
     Active Substance: PROPOFOL
     Indication: Induction of anaesthesia
     Dosage: NOT REPORTED
     Route: 042
     Dates: start: 20231103, end: 20231103
  2. DEXAMETHASONE [Suspect]
     Active Substance: DEXAMETHASONE
     Indication: Prophylaxis of nausea and vomiting
     Dosage: 8 MG
     Route: 042
     Dates: start: 20231103, end: 20231103
  3. CEFAZOLIN [Suspect]
     Active Substance: CEFAZOLIN
     Indication: Antibiotic prophylaxis
     Dosage: 2 GRAM (2 GRAMS IN 1 DOSE)
     Route: 042
     Dates: start: 20231103, end: 20231103
  4. SUFENTANIL [Suspect]
     Active Substance: SUFENTANIL
     Indication: Induction of anaesthesia
     Dosage: NOT REPORTED
     Route: 042
     Dates: start: 20231103, end: 20231103
  5. ATRACURIUM [Suspect]
     Active Substance: ATRACURIUM
     Indication: Neuromuscular blocking therapy
     Dosage: 10 MILLIGRAM, TID (10 MG 3 TIMES AT IRREGULAR INTERVALS)
     Route: 042
     Dates: start: 20231103, end: 20231103
  6. SUCCINYLCHOLINE CHLORIDE [Suspect]
     Active Substance: SUCCINYLCHOLINE CHLORIDE
     Indication: Induction of anaesthesia
     Dosage: NOT REPORTED
     Route: 042
     Dates: start: 20231103, end: 20231103

REACTIONS (1)
  - Anaphylactic shock [Recovered/Resolved]

NARRATIVE: CASE EVENT DATE: 20231103
